FAERS Safety Report 6428813-5 (Version None)
Quarter: 2009Q4

REPORT INFORMATION
  Report Type: 
  Country: None (occurrence: None)
  Receive Date: 20091105
  Receipt Date: 20091102
  Transmission Date: 20100525
  Serious: Yes (Other)
  Sender: FDA-Public Use
  Company Number: CHPA2009US21330

PATIENT
  Age: 89 Year
  Sex: Female
  Weight: 69.841 kg

DRUGS (2)
  1. SLOW FE IRON TABLETS (NCH) [Suspect]
     Indication: IRON DEFICIENCY
     Dosage: 320 MG, QD
     Route: 048
  2. SLOW FE IRON TABLETS (NCH) [Suspect]
     Dosage: 480 MG, QD
     Route: 048
     Dates: start: 20030101

REACTIONS (2)
  - CATARACT [None]
  - CATARACT OPERATION [None]
